FAERS Safety Report 5031204-5 (Version None)
Quarter: 2006Q2

REPORT INFORMATION
  Report Type: 
  Country: None (occurrence: None)
  Receive Date: 20060621
  Receipt Date: 20060320
  Transmission Date: 20061013
  Serious: No
  Sender: FDA-Public Use
  Company Number: US-GLAXOSMITHKLINE-A0598216A

PATIENT
  Age: 56 Year
  Sex: Female

DRUGS (4)
  1. AVANDARYL [Suspect]
     Route: 048
  2. ASPIRIN [Concomitant]
  3. BENAZAPRIL [Concomitant]
  4. REGLAN [Concomitant]

REACTIONS (4)
  - DEHYDRATION [None]
  - MALAISE [None]
  - POLLAKIURIA [None]
  - VISION BLURRED [None]
